FAERS Safety Report 5524484-0 (Version None)
Quarter: 2007Q4

REPORT INFORMATION
  Report Type: 
  Country: None (occurrence: None)
  Receive Date: 20071122
  Receipt Date: 20071108
  Transmission Date: 20080405
  Serious: Yes (Hospitalization)
  Sender: FDA-Public Use
  Company Number: GR-ELI_LILLY_AND_COMPANY-GR200710000999

PATIENT
  Age: 67 Year
  Sex: Male
  Weight: 96 kg

DRUGS (9)
  1. HUMULIN R [Suspect]
     Dosage: 52 U, EACH MORNING
     Route: 058
     Dates: start: 20050101
  2. HUMULIN R [Suspect]
     Dosage: 52 U, EACH EVENING
     Route: 058
     Dates: start: 20050101
  3. ACE INHIBITOR NOS [Concomitant]
     Dosage: UNK, UNKNOWN
     Route: 065
  4. CALCIUM CHANNEL BLOCKERS [Concomitant]
     Dosage: UNK, UNKNOWN
     Route: 065
  5. ANGIOTENSIN II ANTAGONISTS [Concomitant]
     Dosage: UNK, UNKNOWN
     Route: 065
  6. DIURETICS [Concomitant]
     Dosage: UNK, UNKNOWN
     Route: 065
  7. ASPIRIN [Concomitant]
     Dosage: UNK, UNKNOWN
     Route: 065
     Dates: end: 20070101
  8. TICLOPIDINE [Concomitant]
     Dosage: UNK, UNKNOWN
     Route: 065
  9. CLOPIDOGREL [Concomitant]
     Dosage: UNK, UNKNOWN
     Route: 065

REACTIONS (2)
  - GASTRIC HAEMORRHAGE [None]
  - MYELOPATHY [None]
